FAERS Safety Report 10160107 (Version 1)
Quarter: 2014Q2

REPORT INFORMATION
  Report Type: Spontaneous
  Country: US (occurrence: None)
  Receive Date: 20140506
  Receipt Date: 20140506
  Transmission Date: 20141212
  Serious: Yes (Other)
  Sender: FDA-Public Use
  Company Number: 2014P1003535

PATIENT
  Sex: Male

DRUGS (1)
  1. DEXEDRINE [Suspect]

REACTIONS (2)
  - Hydrocephalus [None]
  - Paternal drugs affecting foetus [None]
